FAERS Safety Report 16697696 (Version 1)
Quarter: 2019Q4

REPORT INFORMATION
  Report Type: Spontaneous
  Country: US (occurrence: US)
  Receive Date: 20190812
  Receipt Date: 20190812
  Transmission Date: 20200122
  Serious: Yes (Hospitalization)
  Sender: FDA-Public Use
  Company Number: None

PATIENT
  Age: 50 Year
  Sex: Female
  Weight: 58.5 kg

DRUGS (5)
  1. FOLIC ACID. [Concomitant]
     Active Substance: FOLIC ACID
  2. LEXAPRO [Concomitant]
     Active Substance: ESCITALOPRAM OXALATE
  3. HIGH POTENCY MULTI-VITAMIN [Concomitant]
  4. GILENYA [Suspect]
     Active Substance: FINGOLIMOD HYDROCHLORIDE
     Indication: MULTIPLE SCLEROSIS
     Dosage: ?          QUANTITY:1 DROP(S);?
     Route: 048
     Dates: start: 20180301, end: 20190306
  5. IRON [Concomitant]
     Active Substance: IRON

REACTIONS (2)
  - Herpes ophthalmic [None]
  - Herpes zoster [None]

NARRATIVE: CASE EVENT DATE: 20190303
